FAERS Safety Report 7558134-9 (Version None)
Quarter: 2011Q2

REPORT INFORMATION
  Report Type: 
  Country: None (occurrence: None)
  Receive Date: 20110620
  Receipt Date: 20110609
  Transmission Date: 20111010
  Serious: Yes (Other)
  Sender: FDA-Public Use
  Company Number: BR-SANOFI-AVENTIS-2011SA036834

PATIENT
  Age: 50 Year
  Sex: Female
  Weight: 50 kg

DRUGS (10)
  1. FUROSEMIDE [Concomitant]
     Route: 048
     Dates: start: 20090101
  2. AUTOPEN 24 [Suspect]
  3. LEVOTHYROXINE SODIUM [Concomitant]
     Indication: HYPOTHYROIDISM
     Route: 048
     Dates: start: 20090101
  4. NOVORAPID [Concomitant]
     Indication: TYPE 1 DIABETES MELLITUS
     Route: 058
  5. LANTUS [Suspect]
     Indication: DIABETES MELLITUS
     Route: 058
  6. DIGOXIN [Concomitant]
     Route: 048
     Dates: start: 20090101
  7. SIMVASTATIN [Concomitant]
     Route: 048
     Dates: start: 20090101
  8. CARVEDILOL [Concomitant]
     Route: 048
     Dates: start: 20090101
  9. COLTRAX [Concomitant]
     Route: 048
  10. ASPIRIN [Concomitant]
     Route: 048
     Dates: start: 20090101

REACTIONS (4)
  - HYPERGLYCAEMIA [None]
  - FATIGUE [None]
  - CARDIAC DISORDER [None]
  - DIZZINESS [None]
